FAERS Safety Report 4822465-3 (Version None)
Quarter: 2005Q4

REPORT INFORMATION
  Report Type: 
  Country: None (occurrence: None)
  Receive Date: 20051104
  Receipt Date: 20051020
  Transmission Date: 20060501
  Serious: Yes (Hospitalization)
  Sender: FDA-Public Use
  Company Number: PHHO2005JP14888

PATIENT
  Age: 75 Year
  Sex: Male
  Weight: 68.9921 kg

DRUGS (4)
  1. VISUDYNE [Suspect]
     Indication: MACULAR DEGENERATION
     Dosage: 5.2 ML DAILY IV
     Route: 042
     Dates: start: 20040826, end: 20040826
  2. VISUDYNE [Suspect]
     Indication: MACULAR DEGENERATION
     Dosage: 5.2 ML DAILY IV
     Route: 042
     Dates: start: 20041221, end: 20041221
  3. ALLEGRA [Concomitant]
  4. DIOVAN [Concomitant]

REACTIONS (3)
  - CEREBRAL INFARCTION [None]
  - HEPATIC ENZYME INCREASED [None]
  - VISUAL ACUITY REDUCED [None]
